FAERS Safety Report 19168600 (Version 1)
Quarter: 2021Q2

REPORT INFORMATION
  Report Type: Spontaneous
  Country: IT (occurrence: IT)
  Receive Date: 20210422
  Receipt Date: 20210422
  Transmission Date: 20210717
  Serious: Yes (Other)
  Sender: FDA-Public Use
  Company Number: IT-AMGEN-ITASP2021056334

PATIENT

DRUGS (8)
  1. FILGRASTIM [Suspect]
     Active Substance: FILGRASTIM
     Indication: NEUTROPENIA
     Dosage: 5 MICROGRAM/KILOGRAM, AFTER CHEMO
     Route: 058
  2. CYTOSINE ARABINOSIDE [Concomitant]
     Active Substance: CYTARABINE
     Indication: NON-HODGKIN^S LYMPHOMA
     Dosage: 2 GRAM PER SQUARE METRE (DAY 5, A 3?H INFUSION IN 500 ML, REPEATED EVERY 21 DAYS)
     Route: 065
  3. COTRIMOXAZOLE [Concomitant]
     Active Substance: SULFAMETHOXAZOLE\TRIMETHOPRIM
     Indication: PROPHYLAXIS
     Dosage: UNK
     Route: 048
  4. ALLOPURINOL. [Concomitant]
     Active Substance: ALLOPURINOL
     Indication: PROPHYLAXIS
     Dosage: UNK
     Route: 048
  5. CISPLATIN. [Concomitant]
     Active Substance: CISPLATIN
     Indication: NON-HODGKIN^S LYMPHOMA
     Dosage: 25 MILLIGRAM/SQ. METER (1000 ML WAS GIVEN AS A CONTINUOS INFUSION ON DAYS 1 TO 4, EVERY 21 DAYS)
     Route: 065
  6. METHYLPREDNISOLONE. [Concomitant]
     Active Substance: METHYLPREDNISOLONE
     Indication: NON-HODGKIN^S LYMPHOMA
     Dosage: 500 MILLIGRAM, Q3WK (IN A 100 ML INFUSION OVER 15 MIN, EVERY 21 DAYS)
     Route: 065
  7. ETOPOSIDE. [Concomitant]
     Active Substance: ETOPOSIDE
     Indication: NON-HODGKIN^S LYMPHOMA
     Dosage: 40 MILLIGRAM/SQ. METER, Q3WK (INFUSED IN 250 ML OVER 2 H.,EVERY 21 DAYS)
     Route: 065
  8. CIMETIDINE [Concomitant]
     Active Substance: CIMETIDINE
     Indication: PROPHYLAXIS
     Dosage: UNK
     Route: 048

REACTIONS (13)
  - Nausea [Unknown]
  - Phlebitis [Unknown]
  - Myalgia [Unknown]
  - Headache [Unknown]
  - White blood cell count decreased [Unknown]
  - Non-Hodgkin^s lymphoma [Unknown]
  - Thrombocytopenia [Recovered/Resolved]
  - Bone pain [Unknown]
  - Neutrophil count decreased [Recovered/Resolved]
  - Therapeutic product effect incomplete [Unknown]
  - Drug ineffective [Unknown]
  - Pyrexia [Recovered/Resolved]
  - Erythema [Unknown]
